FAERS Safety Report 11944703 (Version 2)
Quarter: 2016Q1

REPORT INFORMATION
  Report Type: Spontaneous
  Country: GB (occurrence: GB)
  Receive Date: 20160125
  Receipt Date: 20160127
  Transmission Date: 20160526
  Serious: Yes (Other)
  Sender: FDA-Public Use
  Company Number: GB-009507513-1601GBR006579

PATIENT
  Sex: Male

DRUGS (1)
  1. ERTAPENEM SODIUM [Suspect]
     Active Substance: ERTAPENEM SODIUM
     Dosage: 1 G, UNK
     Route: 042

REACTIONS (5)
  - Dizziness [Recovered/Resolved]
  - Faecal volume increased [Unknown]
  - Chromaturia [Unknown]
  - Diarrhoea [Unknown]
  - Ileostomy [Unknown]

NARRATIVE: CASE EVENT DATE: 20160116
